FAERS Safety Report 10123257 (Version 2)
Quarter: 2015Q1

REPORT INFORMATION
  Report Type: Other
  Country: US (occurrence: US)
  Receive Date: 20140427
  Receipt Date: 20150213
  Transmission Date: 20150720
  Serious: Yes (Hospitalization, Other)
  Sender: FDA-Public Use
  Company Number: US-GSKPPD-2014GSK027368

PATIENT
  Age: 65 Year
  Sex: Female

DRUGS (9)
  1. COREG [Concomitant]
     Active Substance: CARVEDILOL
     Route: 048
  2. IMDUR [Concomitant]
     Active Substance: ISOSORBIDE MONONITRATE
     Route: 048
  3. LISINOPRIL. [Concomitant]
     Active Substance: LISINOPRIL
     Route: 048
  4. DOXAZOSIN [Concomitant]
     Active Substance: DOXAZOSIN\DOXAZOSIN MESYLATE
  5. AVANDIA [Suspect]
     Active Substance: ROSIGLITAZONE MALEATE
     Indication: DIABETES MELLITUS
     Dosage: AVANDIA WAS NOT LISTED AMONG THE PATIENTS RECORDS REVIEWED.
     Route: 048
  6. PLAVIX [Concomitant]
     Active Substance: CLOPIDOGREL BISULFATE
     Route: 048
  7. ASPIRIN. [Concomitant]
     Active Substance: ASPIRIN
     Route: 048
  8. DIOVAN/HYDROCHLOROTHIAZIDE [Concomitant]
     Dosage: 320 MG PER 25 MG
  9. ALDACTONE [Concomitant]
     Active Substance: SPIRONOLACTONE
     Route: 048

REACTIONS (1)
  - Acute myocardial infarction [Recovered/Resolved]

NARRATIVE: CASE EVENT DATE: 20100705
